FAERS Safety Report 9706231 (Version 1)
Quarter: 2013Q4

REPORT INFORMATION
  Report Type: Spontaneous
  Country: FR (occurrence: FR)
  Receive Date: 20131125
  Receipt Date: 20131125
  Transmission Date: 20140711
  Serious: Yes (Death)
  Sender: FDA-Public Use
  Company Number: FR-ROCHE-1304384

PATIENT
  Age: 79 Year
  Sex: Male

DRUGS (39)
  1. MIRCERA [Suspect]
     Indication: PRODUCT USED FOR UNKNOWN INDICATION
     Dosage: PREFILLED SYRINGE 100 MCG/0.3ML
     Route: 058
     Dates: start: 20130907, end: 20130907
  2. MIRCERA [Suspect]
     Dosage: PREFILLED SYRINGE 100 MCG/0.3ML
     Route: 058
     Dates: start: 20130921, end: 20130921
  3. SOLIRIS [Suspect]
     Indication: HAEMOLYTIC URAEMIC SYNDROME
     Dosage: FIRST INJECTION: 900MG, THEN 1200MG AND 600MG
     Route: 042
     Dates: start: 20130905
  4. SOLIRIS [Suspect]
     Route: 042
     Dates: start: 20130912
  5. SOLIRIS [Suspect]
     Route: 042
     Dates: start: 20130925
  6. SOLIRIS [Suspect]
     Route: 042
     Dates: start: 20130926
  7. SOLIRIS [Suspect]
     Route: 042
     Dates: start: 20130927, end: 20130930
  8. REPAGLINIDE [Suspect]
     Indication: HYPERTENSION
     Route: 048
     Dates: start: 20130924, end: 20130930
  9. AMLODIPINE [Suspect]
     Indication: HYPERTENSION
     Route: 048
     Dates: start: 20130830, end: 20130930
  10. INEXIUM [Suspect]
     Indication: PRODUCT USED FOR UNKNOWN INDICATION
     Route: 048
     Dates: start: 20130830, end: 20130930
  11. LASILIX [Suspect]
     Indication: PRODUCT USED FOR UNKNOWN INDICATION
     Route: 048
     Dates: start: 20130902, end: 20130904
  12. LASILIX [Suspect]
     Route: 048
     Dates: start: 20130905, end: 20130930
  13. MIANSERINE [Suspect]
     Indication: PRODUCT USED FOR UNKNOWN INDICATION
     Route: 048
     Dates: start: 20130909, end: 20130930
  14. RENVELA [Suspect]
     Indication: PRODUCT USED FOR UNKNOWN INDICATION
     Route: 048
     Dates: start: 20130904, end: 20130930
  15. ROVAMYCINE [Suspect]
     Indication: PRODUCT USED FOR UNKNOWN INDICATION
     Route: 048
     Dates: start: 20130920, end: 20130930
  16. LEDERFOLINE [Suspect]
     Indication: PRODUCT USED FOR UNKNOWN INDICATION
     Route: 048
     Dates: start: 20130928, end: 20130930
  17. CORTANCYL [Suspect]
     Indication: RHEUMATOID ARTHRITIS
     Route: 042
     Dates: start: 20130920
  18. CORTANCYL [Suspect]
     Route: 048
     Dates: end: 20130930
  19. CALCIDIA [Suspect]
     Indication: PRODUCT USED FOR UNKNOWN INDICATION
     Route: 048
     Dates: start: 20130904, end: 20130930
  20. CONTRAMAL [Suspect]
     Indication: PRODUCT USED FOR UNKNOWN INDICATION
     Route: 048
     Dates: start: 20130830, end: 20130930
  21. EUPRESSYL [Suspect]
     Indication: HYPERTENSION
     Route: 048
     Dates: start: 20130916, end: 20130926
  22. EUPRESSYL [Suspect]
     Route: 048
     Dates: start: 20130926, end: 20130930
  23. ARAVA [Concomitant]
     Route: 065
  24. PREDNISONE [Concomitant]
     Route: 065
  25. OMEPRAZOLE [Concomitant]
     Route: 065
  26. DIAMICRON [Concomitant]
     Route: 065
  27. ZALDIAR [Concomitant]
     Dosage: 37.5/325MG
     Route: 065
  28. BROMAZEPAM [Concomitant]
     Route: 065
  29. SYMBICORT [Concomitant]
  30. BRONCHODUAL [Concomitant]
  31. VENTOLINE [Concomitant]
  32. ATROVENT [Concomitant]
  33. LEXOMIL [Concomitant]
     Route: 065
  34. LEDERFOLINE [Concomitant]
     Dosage: TWO INTAKE IN TOTAL
     Route: 065
     Dates: start: 20130928
  35. VITAMIN B12 [Concomitant]
     Route: 048
     Dates: start: 20130908, end: 20130916
  36. LANTUS SOLOSTAR [Concomitant]
     Route: 065
     Dates: start: 20130923
  37. PENTACARINAT [Concomitant]
     Route: 065
     Dates: start: 20130916
  38. ORACILLINE [Concomitant]
     Route: 065
     Dates: start: 20130905, end: 20130920
  39. METHYLPREDNISOLONE [Concomitant]
     Route: 065

REACTIONS (2)
  - Cardio-respiratory arrest [Fatal]
  - Cardiac arrest [Fatal]
